FAERS Safety Report 19728826 (Version 1)
Quarter: 2021Q3

REPORT INFORMATION
  Report Type: Spontaneous
  Country: PL (occurrence: PL)
  Receive Date: 20210820
  Receipt Date: 20210820
  Transmission Date: 20211014
  Serious: Yes (Other)
  Sender: FDA-Public Use
  Company Number: PL-PFIZER INC-202101025248

PATIENT
  Sex: Female

DRUGS (1)
  1. SUTENT [Suspect]
     Active Substance: SUNITINIB MALATE
     Indication: PANCREATIC CARCINOMA
     Dosage: 37.5, 1X/DAY
     Route: 048

REACTIONS (12)
  - Nasal disorder [Unknown]
  - Vomiting [Unknown]
  - Retching [Unknown]
  - Erythema [Unknown]
  - Wound complication [Unknown]
  - Ageusia [Unknown]
  - Dysgeusia [Unknown]
  - Alopecia [Unknown]
  - Diarrhoea [Unknown]
  - Blood pressure increased [Unknown]
  - Pustule [Unknown]
  - Wound dehiscence [Unknown]
